FAERS Safety Report 15431176 (Version 1)
Quarter: 2018Q3

REPORT INFORMATION
  Report Type: Report from Study
  Country: US (occurrence: US)
  Receive Date: 20180926
  Receipt Date: 20180926
  Transmission Date: 20181010
  Serious: Yes (Death)
  Sender: FDA-Public Use
  Company Number: US-EXELIXIS-CABO-18016061

PATIENT
  Age: 84 Year
  Sex: Female

DRUGS (20)
  1. ESCITALOPRAM [Concomitant]
     Active Substance: ESCITALOPRAM OXALATE
  2. NITROFURANTIN [Concomitant]
     Active Substance: NITROFURANTOIN
  3. TRAMADOL. [Concomitant]
     Active Substance: TRAMADOL
  4. CABOMETYX [Suspect]
     Active Substance: CABOZANTINIB S-MALATE
     Indication: RENAL CANCER
     Dosage: 40 MG, QD
     Route: 048
     Dates: start: 20170225
  5. LEVOTHYROXINE. [Concomitant]
     Active Substance: LEVOTHYROXINE
  6. LIPITOR [Concomitant]
     Active Substance: ATORVASTATIN CALCIUM
  7. METOPROLOL. [Concomitant]
     Active Substance: METOPROLOL
  8. XARELTO [Concomitant]
     Active Substance: RIVAROXABAN
  9. LORAZEPAM. [Concomitant]
     Active Substance: LORAZEPAM
  10. MEGACE [Concomitant]
     Active Substance: MEGESTROL ACETATE
  11. DIGOX [Concomitant]
     Active Substance: DIGOXIN
  12. MEGESTROL ACETATE. [Concomitant]
     Active Substance: MEGESTROL ACETATE
  13. TRIAMTERENE HCTZ [Concomitant]
     Active Substance: HYDROCHLOROTHIAZIDE\TRIAMTERENE
  14. TYLENOL [Concomitant]
     Active Substance: ACETAMINOPHEN
  15. IMODIUM A?D [Concomitant]
     Active Substance: LOPERAMIDE HYDROCHLORIDE
  16. AMLODIPINE [Concomitant]
     Active Substance: AMLODIPINE BESYLATE
  17. NORCO [Concomitant]
     Active Substance: ACETAMINOPHEN\HYDROCODONE BITARTRATE
  18. PROCHLORPERAZINE. [Concomitant]
     Active Substance: PROCHLORPERAZINE
  19. BACTRIM [Concomitant]
     Active Substance: SULFAMETHOXAZOLE\TRIMETHOPRIM
  20. PANCRELIPASE. [Concomitant]
     Active Substance: PANCRELIPASE

REACTIONS (1)
  - Death [Fatal]

NARRATIVE: CASE EVENT DATE: 20180831
